FAERS Safety Report 23833690 (Version 4)
Quarter: 2024Q2

REPORT INFORMATION
  Report Type: Report from Study
  Country: US (occurrence: US)
  Receive Date: 20240508
  Receipt Date: 20240531
  Transmission Date: 20240716
  Serious: No
  Sender: FDA-Public Use
  Company Number: US-AstraZeneca-CH-00619287A

PATIENT
  Age: 66 Year
  Sex: Female
  Weight: 59.864 kg

DRUGS (1)
  1. STRENSIQ [Suspect]
     Active Substance: ASFOTASE ALFA
     Indication: Hypophosphatasia
     Dosage: 120 MILLIGRAM, TIW
     Route: 058
     Dates: start: 20240420

REACTIONS (7)
  - Pain [Unknown]
  - Injection site bruising [Unknown]
  - Weight increased [Not Recovered/Not Resolved]
  - Procedural pain [Unknown]
  - Increased appetite [Not Recovered/Not Resolved]
  - Injection site swelling [Recovered/Resolved]
  - Injection site pain [Unknown]

NARRATIVE: CASE EVENT DATE: 20240502
